FAERS Safety Report 9323720 (Version 1)
Quarter: 2013Q2

REPORT INFORMATION
  Report Type: Spontaneous
  Country: US (occurrence: US)
  Receive Date: 20130603
  Receipt Date: 20130603
  Transmission Date: 20140414
  Serious: Yes (Hospitalization)
  Sender: FDA-Public Use
  Company Number: US-BAYER-2013-065936

PATIENT
  Age: 43 Year
  Sex: Female

DRUGS (22)
  1. YAZ [Suspect]
  2. BEYAZ [Suspect]
  3. CYCLOBENZAPRINE [Concomitant]
     Dosage: 5 MG, UNK
     Dates: start: 20120127
  4. METHYLPREDNIS [Concomitant]
     Dosage: 4 MG, UNK
     Dates: start: 20120208
  5. METHYLPREDNIS [Concomitant]
     Dosage: 4 MG, UNK
     Dates: start: 20120313
  6. ACETAMINOPHEN W/HYDROCODONE [Concomitant]
     Dosage: UNK
     Dates: start: 20120215
  7. SENNA [Concomitant]
     Dosage: UNK
     Dates: start: 20120215
  8. ACETAMINOPHEN W/OXYCODONE [Concomitant]
     Dosage: UNK
     Dates: start: 20120402
  9. DIAZEPAM [Concomitant]
     Dosage: 10 MG, UNK
     Dates: start: 20120406
  10. PERCOCET [Concomitant]
  11. REQUIP [Concomitant]
     Indication: RESTLESS LEGS SYNDROME
  12. SENOKOT [Concomitant]
  13. TRAZODONE [Concomitant]
     Indication: SLEEP DISORDER
  14. VERSED [Concomitant]
  15. FOSPHENYTOIN [Concomitant]
  16. CEREBYX [Concomitant]
  17. PROPOFOL [Concomitant]
  18. VICODIN [Concomitant]
  19. LACOSAMIDE [Concomitant]
  20. ACETAMINOPHEN [Concomitant]
  21. LORAZEPAM [Concomitant]
  22. KEPPRA [Concomitant]
     Indication: CONVULSION PROPHYLAXIS

REACTIONS (7)
  - Superior sagittal sinus thrombosis [None]
  - Grand mal convulsion [None]
  - Cerebral infarction [None]
  - Cerebral haemorrhage [None]
  - Vision blurred [None]
  - Feeling abnormal [None]
  - Vasogenic cerebral oedema [None]
